FAERS Safety Report 8432460-3 (Version None)
Quarter: 2012Q2

REPORT INFORMATION
  Report Type: 
  Country: None (occurrence: None)
  Receive Date: 20120613
  Receipt Date: 20120605
  Transmission Date: 20120825
  Serious: Yes (Hospitalization)
  Sender: FDA-Public Use
  Company Number: US-ASTRAZENECA-2011SE41508

PATIENT
  Age: 62 Year
  Sex: Male

DRUGS (22)
  1. TRAMADOL HCL [Concomitant]
     Indication: PAIN
  2. PRILOSEC [Concomitant]
     Dates: start: 20090721
  3. HYDROCODONE [Concomitant]
     Indication: PAIN
  4. ACTOS [Concomitant]
     Dates: start: 20020830
  5. NEXIUM [Suspect]
     Route: 048
     Dates: start: 20020830
  6. PRILOSEC [Concomitant]
     Indication: GASTRIC ULCER
     Dates: start: 20090101
  7. FLOMAX [Concomitant]
     Dates: start: 20090721
  8. CYCLOBENZAPRINE [Concomitant]
     Indication: PAIN
  9. AMARYL [Concomitant]
     Dates: start: 20020830
  10. DITYRIDAMOLE [Concomitant]
     Indication: ANTICOAGULANT THERAPY
  11. ASPIRIN [Concomitant]
     Indication: CEREBROVASCULAR ACCIDENT PROPHYLAXIS
     Dates: start: 20090721
  12. NEXIUM [Suspect]
     Indication: GASTRIC ULCER
     Route: 048
     Dates: start: 20010101, end: 20060101
  13. CALCIUM CARBONATE [Concomitant]
     Dosage: 4 A DAY
     Dates: start: 20060101, end: 20090101
  14. DOXYAZOSIN [Concomitant]
     Indication: PROSTATOMEGALY
  15. AGGRENOX [Concomitant]
     Dates: start: 20090721
  16. NEURONTIN [Concomitant]
     Indication: PAIN
     Dates: start: 20090721
  17. CELEXA [Concomitant]
     Dates: start: 20090721
  18. ZESTORETIC [Concomitant]
     Dates: start: 20090721
  19. NEXIUM [Suspect]
     Route: 048
     Dates: start: 20090721
  20. LISINOPRIL [Concomitant]
     Indication: BLOOD PRESSURE
     Dates: start: 20090721
  21. METFORMIN HCL [Concomitant]
     Indication: DIABETES MELLITUS
  22. DITYRIDAMOLE [Concomitant]
     Indication: CEREBROVASCULAR ACCIDENT PROPHYLAXIS

REACTIONS (10)
  - OSTEOARTHRITIS [None]
  - UPPER LIMB FRACTURE [None]
  - VITAMIN D DEFICIENCY [None]
  - CALCIUM DEFICIENCY [None]
  - ULNA FRACTURE [None]
  - OSTEOPOROSIS [None]
  - NEUROPATHIC ARTHROPATHY [None]
  - EMOTIONAL DISTRESS [None]
  - ANDROGEN DEFICIENCY [None]
  - FOOT FRACTURE [None]
